FAERS Safety Report 4353147-2 (Version None)
Quarter: 2004Q2

REPORT INFORMATION
  Report Type: 
  Country: None (occurrence: None)
  Receive Date: 20040429
  Receipt Date: 20040420
  Transmission Date: 20050107
  Serious: Yes (Hospitalization, Other)
  Sender: FDA-Public Use
  Company Number: 2004014761

PATIENT
  Age: 58 Year
  Sex: Male

DRUGS (19)
  1. LIPITOR [Suspect]
     Indication: HYPERLIPIDAEMIA
     Dosage: 10 MG (DAILY), ORAL
     Route: 048
     Dates: start: 20030711, end: 20031121
  2. VALPROATE SODIUM [Suspect]
     Indication: BIPOLAR I DISORDER
     Dosage: 800 MG (QID), ORAL
     Route: 048
     Dates: start: 20031126, end: 20031210
  3. LEVOMEPROMAZINE (LEVOMEPROMAZINE) [Suspect]
     Indication: BIPOLAR I DISORDER
     Dosage: 25 MG (DAILY), ORAL
     Route: 048
     Dates: start: 19991125, end: 20031211
  4. FLUNITRAZEPAM [Concomitant]
  5. ZOPICLONE [Concomitant]
  6. ESTAZOLAM [Concomitant]
  7. ETIZOLAM [Concomitant]
  8. OLANZAPINE [Concomitant]
  9. CLONAZEPAM [Concomitant]
  10. SENNA LEAF [Concomitant]
  11. AMLODIPINE BESYLATE [Concomitant]
  12. MAPROTILINE HYDROCHLORIDE [Concomitant]
  13. SULPIRIDE [Concomitant]
  14. VEGETAMIN (CHLORPROMAZINE HYDROCHLORIDE, PHENOBARBITAL, PROMETHAZINE H [Concomitant]
  15. CHLORPROMAZINE [Concomitant]
  16. LITHIUM CARBONATE [Concomitant]
  17. MAGNESIUM OXIDE [Concomitant]
  18. NITRAZEPAM [Concomitant]
  19. BETHANECHOL CHLORIDE [Concomitant]

REACTIONS (16)
  - ANURIA [None]
  - BIPOLAR I DISORDER [None]
  - BLOOD CHOLESTEROL INCREASED [None]
  - BLOOD GLUCOSE INCREASED [None]
  - BLOOD TRIGLYCERIDES INCREASED [None]
  - DEPRESSION [None]
  - DRUG INTERACTION [None]
  - HAEMATOCRIT DECREASED [None]
  - HAEMODIALYSIS [None]
  - HAEMOGLOBIN DECREASED [None]
  - HYPOAESTHESIA [None]
  - INSOMNIA [None]
  - MEDICATION ERROR [None]
  - RED BLOOD CELL COUNT DECREASED [None]
  - RENAL FAILURE ACUTE [None]
  - RHABDOMYOLYSIS [None]
